FAERS Safety Report 5236320-0 (Version None)
Quarter: 2007Q1

REPORT INFORMATION
  Report Type: 
  Country: None (occurrence: None)
  Receive Date: 20061208
  Receipt Date: 20050805
  Transmission Date: 20070707
  Serious: Yes (Other)
  Sender: FDA-Public Use
  Company Number: 2005UW10701

PATIENT
  Age: 68 Year
  Sex: Female
  Weight: 51.255 kg

DRUGS (5)
  1. CRESTOR [Suspect]
     Indication: BLOOD CHOLESTEROL INCREASED
     Dosage: 10 MG PO
     Route: 048
     Dates: start: 20040701, end: 20050717
  2. CRESTOR [Suspect]
     Indication: BLOOD CHOLESTEROL INCREASED
     Dosage: 5 MG PO
     Route: 048
     Dates: start: 20050718
  3. LUNESTA [Suspect]
     Indication: SLEEP DISORDER
  4. PROTONIX [Concomitant]
  5. SYNTHROID [Concomitant]

REACTIONS (1)
  - DYSGEUSIA [None]
